FAERS Safety Report 16980000 (Version 1)
Quarter: 2019Q4

REPORT INFORMATION
  Report Type: Spontaneous
  Country: FR (occurrence: FR)
  Receive Date: 20191031
  Receipt Date: 20191031
  Transmission Date: 20200122
  Serious: Yes (Hospitalization, Other)
  Sender: FDA-Public Use
  Company Number: FR-PFIZER INC-2019466618

PATIENT
  Age: 71 Year
  Sex: Male
  Weight: 85 kg

DRUGS (9)
  1. CALCIUM LEVOFOLINATE [Concomitant]
     Active Substance: LEVOLEUCOVORIN CALCIUM
     Indication: ADENOCARCINOMA GASTRIC
     Dosage: 200 MG/M2, UNK (DAY 1 OF CURES)
     Route: 042
     Dates: start: 20180927
  2. SODIUM BICARBONATE. [Concomitant]
     Active Substance: SODIUM BICARBONATE
     Dosage: UNK
     Route: 002
  3. ZOPHREN [Concomitant]
     Active Substance: ONDANSETRON
     Dosage: UNK (IN PREMEDICATION BEFORE CHEMOTHERAPY)
     Route: 042
     Dates: start: 20180927
  4. FLUOROURACIL. [Concomitant]
     Active Substance: FLUOROURACIL
     Indication: ADENOCARCINOMA GASTRIC
     Dosage: 400 MG/M2, CYCLIC
     Route: 042
     Dates: start: 20180927
  5. PARACETAMOL [Concomitant]
     Active Substance: ACETAMINOPHEN
     Dosage: UNK
     Route: 048
  6. SOLU-MEDROL [Concomitant]
     Active Substance: METHYLPREDNISOLONE SODIUM SUCCINATE
     Dosage: UNK (IN PREMEDICATION BEFORE CHEMOTHERAPY)
     Route: 042
     Dates: start: 20180927
  7. PANTOPRAZOLE [Concomitant]
     Active Substance: PANTOPRAZOLE
     Dosage: UNK
     Route: 048
  8. OXALIPLATIN. [Suspect]
     Active Substance: OXALIPLATIN
     Indication: ADENOCARCINOMA GASTRIC
     Dosage: 85 MG/M2, CYCLIC (85MG/M2 DECREASED BY 50% ACCORDING TO FOLFOX PROTOCOL EVERY 15 DAYS)
     Route: 041
     Dates: start: 20180927, end: 20190916
  9. FLUOROURACIL. [Concomitant]
     Active Substance: FLUOROURACIL
     Dosage: 1200 MG/M2, CYCLIC
     Route: 042

REACTIONS (5)
  - Thrombocytopenia [Recovered/Resolved]
  - Coombs positive haemolytic anaemia [Recovered/Resolved]
  - Hypersensitivity [Recovered/Resolved]
  - Off label use [Unknown]
  - Product use in unapproved indication [Unknown]

NARRATIVE: CASE EVENT DATE: 20180927
